FAERS Safety Report 9344367 (Version 1)
Quarter: 2013Q2

REPORT INFORMATION
  Report Type: Report from Study
  Country: US (occurrence: US)
  Receive Date: 20130612
  Receipt Date: 20130612
  Transmission Date: 20140414
  Serious: Yes (Other)
  Sender: FDA-Public Use
  Company Number: US-ASTELLAS-2013US006116

PATIENT
  Sex: 0

DRUGS (2)
  1. ERLOTINIB TABLET [Suspect]
     Indication: GLIOBLASTOMA MULTIFORME
     Dosage: 150 MG, UID/QD
     Route: 065
  2. SORAFENIB [Suspect]
     Indication: GLIOBLASTOMA MULTIFORME
     Dosage: 800 MG, UID/QD
     Route: 065

REACTIONS (2)
  - Off label use [Unknown]
  - Pain in extremity [Unknown]
